FAERS Safety Report 12222972 (Version 2)
Quarter: 2016Q2

REPORT INFORMATION
  Report Type: Spontaneous
  Country: FI (occurrence: FI)
  Receive Date: 20160330
  Receipt Date: 20160429
  Transmission Date: 20160815
  Serious: Yes (Other)
  Sender: FDA-Public Use
  Company Number: FI-BAYER-2016-054495

PATIENT
  Age: 40 Year
  Sex: Female

DRUGS (1)
  1. MIRENA [Suspect]
     Active Substance: LEVONORGESTREL
     Dosage: UNK
     Route: 015
     Dates: start: 201510, end: 20160317

REACTIONS (14)
  - Uterine leiomyoma [None]
  - Abdominal distension [None]
  - Haemoglobin decreased [Not Recovered/Not Resolved]
  - Breast mass [None]
  - Device expulsion [Recovered/Resolved]
  - Quality of life decreased [Not Recovered/Not Resolved]
  - Fatigue [Not Recovered/Not Resolved]
  - Medical device discomfort [None]
  - Menorrhagia [Not Recovered/Not Resolved]
  - Procedural pain [Recovered/Resolved]
  - Abdominal pain [Recovered/Resolved]
  - Vaginal discharge [Recovered/Resolved]
  - Anaemia [Not Recovered/Not Resolved]
  - Feeling abnormal [None]

NARRATIVE: CASE EVENT DATE: 201510
